FAERS Safety Report 14761874 (Version 2)
Quarter: 2018Q3

REPORT INFORMATION
  Report Type: Spontaneous
  Country: CN (occurrence: CN)
  Receive Date: 20180416
  Receipt Date: 20180712
  Transmission Date: 20181010
  Serious: Yes (Hospitalization)
  Sender: FDA-Public Use
  Company Number: CN-SUN PHARMACEUTICAL INDUSTRIES LTD-2018R1-169847

PATIENT
  Age: 35 Year
  Sex: Male

DRUGS (3)
  1. SERTRALINE [Suspect]
     Active Substance: SERTRALINE HYDROCHLORIDE
     Indication: OBSESSIVE-COMPULSIVE SYMPTOM
     Dosage: 50 MG/D AND TITRATING IT TO 100 MG/D
     Route: 065
  2. QUETIAPINE. [Suspect]
     Active Substance: QUETIAPINE
     Indication: PSYCHOTIC SYMPTOM
     Dosage: 100 MG, DAILY
     Route: 065
  3. LITHIUM CARBONATE. [Concomitant]
     Active Substance: LITHIUM CARBONATE
     Indication: PSYCHOTIC SYMPTOM
     Dosage: 0.6 G, DAILY
     Route: 065

REACTIONS (2)
  - Drug effect incomplete [Unknown]
  - Psychotic disorder [Recovered/Resolved]
